FAERS Safety Report 11837459 (Version 1)
Quarter: 2015Q4

REPORT INFORMATION
  Report Type: Spontaneous
  Country: US (occurrence: US)
  Receive Date: 20151215
  Receipt Date: 20151215
  Transmission Date: 20160305
  Serious: Yes (Disabling)
  Sender: FDA-Public Use
  Company Number: US-RISING PHARMACEUTICALS, INC.-2015RIS00171

PATIENT
  Age: 46 Year
  Sex: Male

DRUGS (2)
  1. LANSOPRAZOLE. [Concomitant]
     Active Substance: LANSOPRAZOLE
     Dosage: 30 MG, 1X/DAY
  2. LEVOFLOXACIN. [Suspect]
     Active Substance: LEVOFLOXACIN
     Indication: EPIDIDYMITIS
     Dosage: 750 MG, 1X/DAY
     Dates: start: 2007

REACTIONS (17)
  - Tachycardia [None]
  - Bradycardia [None]
  - Gastrointestinal motility disorder [None]
  - Depression [None]
  - Neuropathy peripheral [Not Recovered/Not Resolved]
  - Paradoxical drug reaction [None]
  - Physical disability [Not Recovered/Not Resolved]
  - Gait disturbance [None]
  - Affective disorder [None]
  - Impaired work ability [None]
  - Hepatosplenomegaly [None]
  - Cognitive disorder [Not Recovered/Not Resolved]
  - Toxicity to various agents [Not Recovered/Not Resolved]
  - Tendon disorder [None]
  - Visual impairment [None]
  - Arthralgia [None]
  - Nervous system disorder [Not Recovered/Not Resolved]
